FAERS Safety Report 7813679-9 (Version None)
Quarter: 2011Q4

REPORT INFORMATION
  Report Type: 
  Country: None (occurrence: None)
  Receive Date: 20111014
  Receipt Date: 20111003
  Transmission Date: 20120403
  Serious: Yes (Hospitalization)
  Sender: FDA-Public Use
  Company Number: US-BAYER-2010-005844

PATIENT
  Age: 26 Year
  Sex: Female
  Weight: 77 kg

DRUGS (4)
  1. CELEXA [Concomitant]
  2. DROSPIRENONE AND ETHINYL ESTRADIOL [Suspect]
     Indication: FERTILITY INCREASED
     Dosage: UNK
     Dates: start: 20090101, end: 20090101
  3. PAROXETINE HCL [Concomitant]
  4. XANAX [Concomitant]
     Indication: ANXIETY

REACTIONS (11)
  - GASTROOESOPHAGEAL REFLUX DISEASE [None]
  - DYSPEPSIA [None]
  - ANXIETY [None]
  - DYSPNOEA [None]
  - CHEST PAIN [None]
  - GENERAL PHYSICAL HEALTH DETERIORATION [None]
  - CHOLECYSTITIS ACUTE [None]
  - ABDOMINAL PAIN [None]
  - ABDOMINAL DISTENSION [None]
  - EMOTIONAL DISTRESS [None]
  - CHOLELITHIASIS [None]
